FAERS Safety Report 20170772 (Version 2)
Quarter: 2022Q1

REPORT INFORMATION
  Report Type: Report from Study
  Country: US (occurrence: US)
  Receive Date: 20211210
  Receipt Date: 20220104
  Transmission Date: 20220423
  Serious: Yes (Hospitalization, Other)
  Sender: FDA-Public Use
  Company Number: US-BIOVITRUM-2021US2235

PATIENT
  Age: 17 Year
  Sex: Female

DRUGS (3)
  1. KINERET [Suspect]
     Active Substance: ANAKINRA
     Indication: Autoinflammatory disease
     Route: 058
     Dates: start: 20200805
  2. KINERET [Suspect]
     Active Substance: ANAKINRA
     Indication: Pericarditis constrictive
     Route: 058
     Dates: start: 20200919
  3. KINERET [Suspect]
     Active Substance: ANAKINRA
     Route: 058
     Dates: start: 202009

REACTIONS (13)
  - Seizure [Unknown]
  - Blood calcium decreased [Unknown]
  - Viral infection [Unknown]
  - Thyroid cancer [Unknown]
  - Oral mucosal blistering [Unknown]
  - Peripheral swelling [Unknown]
  - Attention deficit hyperactivity disorder [Unknown]
  - Depressed mood [Unknown]
  - Lethargy [Unknown]
  - Injection site pain [Unknown]
  - Product storage error [Unknown]
  - Product dose omission issue [Unknown]
  - Off label use [Not Recovered/Not Resolved]

NARRATIVE: CASE EVENT DATE: 20200805
